FAERS Safety Report 4956659-3 (Version None)
Quarter: 2006Q1

REPORT INFORMATION
  Report Type: 
  Country: None (occurrence: None)
  Receive Date: 20060323
  Receipt Date: 20060310
  Transmission Date: 20060701
  Serious: Yes (Hospitalization)
  Sender: FDA-Public Use
  Company Number: S06-FRA-01233-01

PATIENT
  Age: 59 Year
  Sex: Male

DRUGS (5)
  1. CITALOPRAM HYDROBROMIDE [Suspect]
     Indication: BIPOLAR I DISORDER
     Dosage: 1 QD PO
     Route: 048
  2. RISPERDAL [Suspect]
     Indication: BIPOLAR I DISORDER
     Dosage: 1 QD PO
     Route: 048
  3. XENAZINE (TETRABENAZINE) [Suspect]
     Dosage: 0.5 TID PO
     Route: 048
  4. OXAZEPAM [Suspect]
     Indication: BIPOLAR I DISORDER
     Dosage: 50 MG TID PO
     Route: 048
  5. LITHIUM CARBONATE [Suspect]
     Indication: BIPOLAR I DISORDER
     Dosage: 400 MG BID PO
     Route: 048

REACTIONS (4)
  - BRADYCARDIA [None]
  - CARDIOMYOPATHY [None]
  - ELECTROCARDIOGRAM QT PROLONGED [None]
  - HYPERTENSION [None]
